FAERS Safety Report 7324226-2 (Version None)
Quarter: 2011Q1

REPORT INFORMATION
  Report Type: 
  Country: None (occurrence: None)
  Receive Date: 20110301
  Receipt Date: 20110222
  Transmission Date: 20110831
  Serious: Yes (Hospitalization, Other)
  Sender: FDA-Public Use
  Company Number: US-AMGEN-USASP2011008164

PATIENT
  Age: 56 Year
  Sex: Female

DRUGS (2)
  1. ENBREL [Suspect]
     Indication: RHEUMATOID ARTHRITIS
     Dosage: 50 MG, QWK
     Dates: start: 20050512
  2. METHOTREXATE [Concomitant]
     Dosage: 6 MG, QWK
     Dates: start: 20050101

REACTIONS (7)
  - FRUSTRATION [None]
  - RHEUMATOID ARTHRITIS [None]
  - INJECTION SITE SWELLING [None]
  - BLOOD POTASSIUM DECREASED [None]
  - WRONG TECHNIQUE IN DRUG USAGE PROCESS [None]
  - STAPHYLOCOCCAL INFECTION [None]
  - INJECTION SITE PAIN [None]
